FAERS Safety Report 13411288 (Version 2)
Quarter: 2022Q2

REPORT INFORMATION
  Report Type: Spontaneous
  Country: US (occurrence: US)
  Receive Date: 20170406
  Receipt Date: 20220622
  Transmission Date: 20220721
  Serious: Yes (Other)
  Sender: FDA-Public Use
  Company Number: US-JNJFOC-20170306561

PATIENT
  Age: 16 Year
  Sex: Male

DRUGS (1)
  1. RISPERDAL [Suspect]
     Active Substance: RISPERIDONE
     Indication: Bipolar disorder
     Route: 048

REACTIONS (2)
  - Gynaecomastia [Not Recovered/Not Resolved]
  - Galactorrhoea [Unknown]

NARRATIVE: CASE EVENT DATE: 20080701
